FAERS Safety Report 6741733-1 (Version None)
Quarter: 2010Q2

REPORT INFORMATION
  Report Type: 
  Country: None (occurrence: None)
  Receive Date: 20100524
  Receipt Date: 20100506
  Transmission Date: 20101027
  Serious: Yes (Other)
  Sender: FDA-Public Use
  Company Number: BCN-AS-2010-RR-085

PATIENT
  Age: 21 Year
  Sex: Female

DRUGS (7)
  1. TRAMADOL HCL [Suspect]
     Dosage: 3 GRAM (S), ORAL
     Route: 048
  2. QUETIAPINE [Suspect]
     Dosage: 15 GRAM (S), ORAL
     Route: 048
  3. ESCITALOPRAM [Suspect]
     Dosage: 560 MILLIGRAM  ORAL.
     Route: 048
  4. MIRTAZAPINE [Suspect]
     Dosage: 315 MILLIGRAM (S), ORAL
     Route: 048
  5. FLUOXETINE [Suspect]
     Dosage: 1.1 GRAM (S), ORAL
     Route: 048
  6. RISPERIDONE [Suspect]
     Dosage: 120 MILLIGRAM (S),  ORAL
     Route: 048
  7. SLOW-RELEASE LITHIUM (LITHIUM)  \ [Suspect]
     Dosage: 13 GRAM (S), ORAL
     Route: 048

REACTIONS (3)
  - OVERDOSE [None]
  - SEROTONIN SYNDROME [None]
  - SOMNOLENCE [None]
